FAERS Safety Report 12834616 (Version 1)
Quarter: 2016Q4

REPORT INFORMATION
  Report Type: Spontaneous
  Country: AU (occurrence: AU)
  Receive Date: 20161010
  Receipt Date: 20161010
  Transmission Date: 20170207
  Serious: Yes (Other)
  Sender: FDA-Public Use
  Company Number: AU-PFIZER INC-2016463153

PATIENT
  Age: 71 Year
  Sex: Female

DRUGS (1)
  1. RALOVERA [Suspect]
     Active Substance: MEDROXYPROGESTERONE ACETATE
     Indication: HORMONE LEVEL ABNORMAL
     Dosage: 10 MG, UNK
     Dates: start: 201609

REACTIONS (2)
  - Blood urine present [Unknown]
  - Vaginal haemorrhage [Unknown]

NARRATIVE: CASE EVENT DATE: 201609
